FAERS Safety Report 9508979 (Version 1)
Quarter: 2013Q3

REPORT INFORMATION
  Report Type: Spontaneous
  Country: US (occurrence: US)
  Receive Date: 20130909
  Receipt Date: 20130909
  Transmission Date: 20140515
  Serious: No
  Sender: FDA-Public Use
  Company Number: US-BRISTOL-MYERS SQUIBB COMPANY-19056688

PATIENT
  Age: 73 Year
  Sex: Female
  Weight: 72.56 kg

DRUGS (1)
  1. ABILIFY TABS 5 MG [Suspect]
     Indication: DEPRESSION
     Dosage: INTIALLY 5 MG AND THEN REDUCED TO 2.5MG

REACTIONS (3)
  - Memory impairment [Unknown]
  - Balance disorder [Unknown]
  - Feeling abnormal [Unknown]
